FAERS Safety Report 13918926 (Version 1)
Quarter: 2017Q3

REPORT INFORMATION
  Report Type: Spontaneous
  Country: US (occurrence: US)
  Receive Date: 20170830
  Receipt Date: 20170830
  Transmission Date: 20171127
  Serious: Yes (Hospitalization, Other)
  Sender: FDA-Public Use
  Company Number: US-ORION CORPORATION ORION PHARMA-17_00002581

PATIENT
  Age: 67 Year
  Sex: Male

DRUGS (4)
  1. METHOTREXATE. [Suspect]
     Active Substance: METHOTREXATE
     Indication: LEUKAEMIA
     Route: 065
  2. PREDNISONE. [Suspect]
     Active Substance: PREDNISONE
     Indication: LEUKAEMIA
     Route: 065
  3. WARFARIN [Concomitant]
     Active Substance: WARFARIN
     Indication: ATRIAL FIBRILLATION
     Route: 065
  4. CEFAZOLIN [Suspect]
     Active Substance: CEFAZOLIN
     Indication: STAPHYLOCOCCAL BACTERAEMIA
     Route: 065

REACTIONS (8)
  - Blood creatinine increased [Unknown]
  - Hypotension [Unknown]
  - Staphylococcal bacteraemia [Unknown]
  - Neutropenia [Unknown]
  - Immunosuppression [Unknown]
  - Megacolon [Unknown]
  - Arthritis bacterial [Unknown]
  - Clostridium difficile colitis [Recovered/Resolved]
